FAERS Safety Report 13383168 (Version 1)
Quarter: 2017Q1

REPORT INFORMATION
  Report Type: Spontaneous
  Country: SI (occurrence: SI)
  Receive Date: 20170329
  Receipt Date: 20170329
  Transmission Date: 20170429
  Serious: Yes (Life-Threatening, Other)
  Sender: FDA-Public Use
  Company Number: SI-ELI_LILLY_AND_COMPANY-SI201703009927

PATIENT
  Age: 75 Year
  Sex: Male

DRUGS (6)
  1. XELODA [Concomitant]
     Active Substance: CAPECITABINE
     Indication: COLON CANCER METASTATIC
     Dosage: UNK UNK, UNKNOWN
     Route: 065
  2. HELEX [Concomitant]
     Active Substance: ALPRAZOLAM
     Dosage: UNK UNK, UNKNOWN
     Route: 065
  3. ERBITUX [Suspect]
     Active Substance: CETUXIMAB
     Indication: COLON CANCER METASTATIC
     Dosage: 20 MG, UNKNOWN
     Route: 042
     Dates: start: 20170224, end: 20170224
  4. CIPRALEX [Concomitant]
     Active Substance: ESCITALOPRAM OXALATE
     Dosage: UNK UNK, UNKNOWN
     Route: 065
  5. TORECAN [Concomitant]
     Active Substance: THIETHYLPERAZINE MALATE
     Dosage: UNK UNK, UNKNOWN
     Route: 065
  6. NOLPAZA [Concomitant]
     Active Substance: PANTOPRAZOLE SODIUM
     Dosage: UNK UNK, UNKNOWN
     Route: 065

REACTIONS (3)
  - Urticaria [Recovered/Resolved]
  - Oxygen saturation decreased [Recovered/Resolved]
  - Bronchospasm [Recovered/Resolved]

NARRATIVE: CASE EVENT DATE: 20170224
